FAERS Safety Report 17908636 (Version 1)
Quarter: 2020Q2

REPORT INFORMATION
  Report Type: Spontaneous
  Country: CN (occurrence: CN)
  Receive Date: 20200617
  Receipt Date: 20200617
  Transmission Date: 20200714
  Serious: Yes (Other)
  Sender: FDA-Public Use
  Company Number: CN-PFIZER INC-2020234923

PATIENT
  Age: 21 Year
  Sex: Female

DRUGS (2)
  1. ZOLOFT [Suspect]
     Active Substance: SERTRALINE HYDROCHLORIDE
     Dosage: 200 MG, DAILY
     Route: 048
     Dates: start: 201910
  2. ZOLOFT [Suspect]
     Active Substance: SERTRALINE HYDROCHLORIDE
     Indication: DEPRESSION
     Dosage: 50-200MG/DAY
     Route: 048
     Dates: start: 20181010, end: 201904

REACTIONS (1)
  - Follicular thyroid cancer [Recovering/Resolving]

NARRATIVE: CASE EVENT DATE: 20200327
